FAERS Safety Report 7731741-6 (Version None)
Quarter: 2011Q3

REPORT INFORMATION
  Report Type: 
  Country: None (occurrence: None)
  Receive Date: 20110906
  Receipt Date: 20110825
  Transmission Date: 20111222
  Serious: Yes (Hospitalization)
  Sender: FDA-Public Use
  Company Number: US-ASTRAZENECA-2011SE51153

PATIENT
  Age: 72 Year
  Sex: Female
  Weight: 57.2 kg

DRUGS (10)
  1. RESTASIS [Concomitant]
     Indication: DRY EYE
     Dosage: BID
     Route: 050
  2. DETROL [Concomitant]
     Indication: BLADDER DISORDER
     Route: 048
  3. COMBIVENT [Concomitant]
     Indication: ASTHMA
     Route: 055
  4. IMMUNO THERAPY [Concomitant]
     Indication: MULTIPLE ALLERGIES
     Route: 050
  5. ALBUTEROL SULFATE AUTOHALER [Concomitant]
     Indication: ASTHMA
  6. CRESTOR [Suspect]
     Indication: HYPERCHLORAEMIA
     Route: 048
     Dates: start: 20070101, end: 20100601
  7. OMNARIS [Concomitant]
     Indication: NASAL DISORDER
     Route: 045
  8. SINTULAIR [Concomitant]
     Indication: MULTIPLE ALLERGIES
     Route: 048
  9. AMLODIPINE [Concomitant]
     Indication: ASTHMA
  10. CRESTOR [Suspect]
     Route: 048

REACTIONS (4)
  - ASTHMA [None]
  - SLEEP APNOEA SYNDROME [None]
  - MYALGIA [None]
  - HEADACHE [None]
